FAERS Safety Report 7708651-3 (Version None)
Quarter: 2011Q3

REPORT INFORMATION
  Report Type: 
  Country: None (occurrence: None)
  Receive Date: 20110825
  Receipt Date: 20110811
  Transmission Date: 20111222
  Serious: Yes (Other)
  Sender: FDA-Public Use
  Company Number: US-UCBSA-035370

PATIENT
  Sex: Female
  Weight: 86.18 kg

DRUGS (2)
  1. CIMZIA [Suspect]
     Indication: RHEUMATOID ARTHRITIS
     Dosage: INTERRUPTED FOR SURGERY
     Route: 058
     Dates: start: 20101203, end: 20110506
  2. CIMZIA [Suspect]
     Route: 058
     Dates: start: 20110603

REACTIONS (3)
  - PERIPHERAL EMBOLISM [None]
  - PULMONARY THROMBOSIS [None]
  - RHEUMATOID ARTHRITIS [None]
